FAERS Safety Report 4969057-3 (Version None)
Quarter: 2006Q2

REPORT INFORMATION
  Report Type: 
  Country: None (occurrence: None)
  Receive Date: 20060411
  Receipt Date: 20050110
  Transmission Date: 20061013
  Serious: Yes (Hospitalization, Disabling)
  Sender: FDA-Public Use
  Company Number: US-MERCK-0501USA03381

PATIENT
  Age: 55 Year
  Sex: Male
  Weight: 92 kg

DRUGS (4)
  1. VIOXX [Suspect]
     Indication: ARTHRALGIA
     Route: 048
     Dates: start: 20021101, end: 20030901
  2. VIOXX [Suspect]
     Route: 048
     Dates: start: 20040201, end: 20040901
  3. VIOXX [Suspect]
     Indication: PAIN IN EXTREMITY
     Route: 048
     Dates: start: 20021101, end: 20030901
  4. VIOXX [Suspect]
     Route: 048
     Dates: start: 20040201, end: 20040901

REACTIONS (7)
  - AGGRESSION [None]
  - CEREBROVASCULAR ACCIDENT [None]
  - DEPRESSION [None]
  - GALLBLADDER DISORDER [None]
  - HERNIA [None]
  - MUSCULAR WEAKNESS [None]
  - THROMBOSIS [None]
